FAERS Safety Report 7773755-6 (Version None)
Quarter: 2011Q3

REPORT INFORMATION
  Report Type: 
  Country: None (occurrence: None)
  Receive Date: 20110923
  Receipt Date: 20100517
  Transmission Date: 20111222
  Serious: Yes (Other)
  Sender: FDA-Public Use
  Company Number: US-JNJFOC-20110906982

PATIENT
  Sex: Female

DRUGS (2)
  1. CONCENTRATED TYLENOL INFANT DROPS [Suspect]
     Indication: PRODUCT USED FOR UNKNOWN INDICATION
     Route: 048
     Dates: start: 20100504
  2. CONCENTRATED TYLENOL INFANT DROPS [Suspect]
     Route: 048

REACTIONS (2)
  - GASTROINTESTINAL BACTERIAL INFECTION [None]
  - PRODUCT QUALITY ISSUE [None]
